FAERS Safety Report 25571716 (Version 1)
Quarter: 2025Q3

REPORT INFORMATION
  Report Type: Spontaneous
  Country: EU (occurrence: EU)
  Receive Date: 20250717
  Receipt Date: 20250717
  Transmission Date: 20251021
  Serious: Yes (Death, Other)
  Sender: PFIZER
  Company Number: EU-PFIZER INC-PV202500083490

PATIENT
  Age: 70 Year
  Sex: Female

DRUGS (5)
  1. LINEZOLID [Suspect]
     Active Substance: LINEZOLID
     Indication: Enterococcal infection
  2. LINEZOLID [Suspect]
     Active Substance: LINEZOLID
     Indication: Streptococcal infection
  3. LINEZOLID [Suspect]
     Active Substance: LINEZOLID
     Indication: Spondylitis
  4. AMPICILLIN [Suspect]
     Active Substance: AMPICILLIN
     Indication: Enterococcal infection
  5. AMPICILLIN [Suspect]
     Active Substance: AMPICILLIN
     Indication: Streptococcal infection

REACTIONS (1)
  - Drug ineffective [Fatal]
